FAERS Safety Report 22820056 (Version 7)
Quarter: 2023Q4

REPORT INFORMATION
  Report Type: Spontaneous
  Country: IE (occurrence: IE)
  Receive Date: 20230814
  Receipt Date: 20231102
  Transmission Date: 20240109
  Serious: No
  Sender: FDA-Public Use
  Company Number: IE-PFIZER INC-202300265621

PATIENT
  Age: 7 Year
  Sex: Female
  Weight: 19.9 kg

DRUGS (1)
  1. NGENLA [Suspect]
     Active Substance: SOMATROGON-GHLA
     Dosage: 16 MG, WEEKLY

REACTIONS (2)
  - Injection site pain [Unknown]
  - Product odour abnormal [Unknown]
